FAERS Safety Report 25497526 (Version 2)
Quarter: 2025Q3

REPORT INFORMATION
  Report Type: Spontaneous
  Country: EU (occurrence: EU)
  Receive Date: 20250701
  Receipt Date: 20250716
  Transmission Date: 20251020
  Serious: Yes (Other)
  Sender: CELLTRION
  Company Number: EU-CELLTRION INC.-2025DE020414

PATIENT

DRUGS (1)
  1. INFLIXIMAB [Suspect]
     Active Substance: INFLIXIMAB
     Indication: Crohn^s disease
     Dosage: UNK UNK, EVERY TWO WEEKS
     Route: 058

REACTIONS (4)
  - Crohn^s disease [Not Recovered/Not Resolved]
  - Road traffic accident [Not Recovered/Not Resolved]
  - Tibia fracture [Unknown]
  - Impaired healing [Unknown]

NARRATIVE: CASE EVENT DATE: 20250326
